FAERS Safety Report 9534987 (Version 1)
Quarter: 2013Q3

REPORT INFORMATION
  Report Type: Spontaneous
  Country: US (occurrence: US)
  Receive Date: 20130918
  Receipt Date: 20130918
  Transmission Date: 20140515
  Serious: Yes (Hospitalization, Other)
  Sender: FDA-Public Use
  Company Number: 2013SP002665

PATIENT
  Sex: Male

DRUGS (4)
  1. LATUDA [Suspect]
     Indication: PRODUCT USED FOR UNKNOWN INDICATION
     Route: 048
     Dates: end: 201307
  2. ZOLOFT [Suspect]
     Indication: PRODUCT USED FOR UNKNOWN INDICATION
  3. REMERON [Suspect]
     Indication: PRODUCT USED FOR UNKNOWN INDICATION
  4. OPIOIDS [Concomitant]
     Indication: PAIN

REACTIONS (3)
  - Serotonin syndrome [Unknown]
  - Back disorder [Unknown]
  - Pain [Unknown]
